FAERS Safety Report 9698471 (Version 1)
Quarter: 2013Q4

REPORT INFORMATION
  Report Type: Spontaneous
  Country: US (occurrence: US)
  Receive Date: 20131120
  Receipt Date: 20131120
  Transmission Date: 20140711
  Serious: No
  Sender: FDA-Public Use
  Company Number: US-MALLINCKRODT-T201304455

PATIENT
  Age: 47 Year
  Sex: Female

DRUGS (2)
  1. GABLOFEN [Suspect]
     Indication: MUSCLE SPASTICITY
     Dosage: 86 MCG PER DAY
     Route: 037
     Dates: start: 20130819
  2. GABLOFEN [Suspect]
     Dosage: UNK MCG/DAY
     Route: 037
     Dates: start: 2012, end: 20130818

REACTIONS (2)
  - Implant site warmth [Unknown]
  - Muscle rigidity [Recovered/Resolved]
